FAERS Safety Report 5996331-4 (Version None)
Quarter: 2008Q4

REPORT INFORMATION
  Report Type: 
  Country: None (occurrence: None)
  Receive Date: 20081212
  Receipt Date: 20081010
  Transmission Date: 20090506
  Serious: No
  Sender: FDA-Public Use
  Company Number: US-ABBOTT-08P-163-0481076-00

PATIENT
  Sex: Female

DRUGS (2)
  1. HUMIRA [Suspect]
     Indication: COLITIS ULCERATIVE
     Route: 058
     Dates: start: 20080827
  2. UNMED MEDICATION [Concomitant]
     Indication: HYPERTENSION

REACTIONS (2)
  - HYPOACUSIS [None]
  - TINNITUS [None]
